FAERS Safety Report 13359764 (Version 5)
Quarter: 2017Q2

REPORT INFORMATION
  Report Type: Report from Study
  Country: US (occurrence: US)
  Receive Date: 20170322
  Receipt Date: 20170519
  Transmission Date: 20170830
  Serious: Yes (Death, Hospitalization)
  Sender: FDA-Public Use
  Company Number: US-JNJFOC-20170123270

PATIENT
  Age: 74 Year
  Sex: Male

DRUGS (20)
  1. ATORVASTATIN CALCIUM. [Concomitant]
     Active Substance: ATORVASTATIN CALCIUM
  2. BUMETANIDE. [Concomitant]
     Active Substance: BUMETANIDE
  3. VITAMIN D3 [Concomitant]
     Active Substance: CHOLECALCIFEROL
  4. LEVOTHYROXINE. [Concomitant]
     Active Substance: LEVOTHYROXINE
  5. IMBRUVICA [Suspect]
     Active Substance: IBRUTINIB
     Indication: CHRONIC LYMPHOCYTIC LEUKAEMIA
     Route: 048
     Dates: start: 20170117, end: 201701
  6. FENOFIBRATE. [Concomitant]
     Active Substance: FENOFIBRATE
  7. LISINOPRIL. [Concomitant]
     Active Substance: LISINOPRIL
  8. IMBRUVICA [Suspect]
     Active Substance: IBRUTINIB
     Indication: CHRONIC LYMPHOCYTIC LEUKAEMIA
     Route: 048
     Dates: start: 20170117
  9. ALTACE [Concomitant]
     Active Substance: RAMIPRIL
  10. TIOTROPIUM BROMIDE [Concomitant]
     Active Substance: TIOTROPIUM BROMIDE
  11. TRIAMCINOLONE [Concomitant]
     Active Substance: TRIAMCINOLONE
  12. PROAIR HFA [Concomitant]
     Active Substance: ALBUTEROL SULFATE
  13. PROTONIX [Concomitant]
     Active Substance: PANTOPRAZOLE SODIUM
  14. FUROSEMIDE. [Concomitant]
     Active Substance: FUROSEMIDE
  15. SOTALAR [Concomitant]
  16. MAGNESIUM CITRATE. [Concomitant]
     Active Substance: MAGNESIUM CITRATE
  17. ELIQUIS [Concomitant]
     Active Substance: APIXABAN
  18. CARVEDILOL. [Concomitant]
     Active Substance: CARVEDILOL
  19. CLOPIDOGREL BISULFATE. [Concomitant]
     Active Substance: CLOPIDOGREL BISULFATE
  20. FOLIC ACID. [Concomitant]
     Active Substance: FOLIC ACID

REACTIONS (9)
  - Feeling abnormal [Recovered/Resolved]
  - Diarrhoea [Unknown]
  - Peripheral swelling [Recovering/Resolving]
  - Constipation [Unknown]
  - Nausea [Unknown]
  - White blood cell count abnormal [Unknown]
  - Dyspnoea [Unknown]
  - Abdominal discomfort [Unknown]
  - Cardiac failure congestive [Fatal]

NARRATIVE: CASE EVENT DATE: 2017
